FAERS Safety Report 9000277 (Version 1)
Quarter: 2013Q1

REPORT INFORMATION
  Report Type: Spontaneous
  Country: US (occurrence: None)
  Receive Date: 20130102
  Receipt Date: 20130102
  Transmission Date: 20140127
  Serious: No
  Sender: FDA-Public Use
  Company Number: None

PATIENT
  Age: 60 Year
  Sex: Male
  Weight: 78.6 kg

DRUGS (2)
  1. BOCEPREVIR [Suspect]
     Indication: HEPATITIS C
     Dosage: 800 MG TID PO
     Route: 048
     Dates: start: 20121003, end: 20121128
  2. PEGINTERFERON [Suspect]
     Indication: HEPATITIS C
     Dosage: 135 MCG QWEEK SQ
     Route: 058
     Dates: start: 20120821, end: 20121128

REACTIONS (4)
  - Thrombocytopenia [None]
  - Neutropenia [None]
  - Leukopenia [None]
  - Conjunctivitis [None]
